FAERS Safety Report 4446625-9 (Version None)
Quarter: 2004Q3

REPORT INFORMATION
  Report Type: 
  Country: None (occurrence: None)
  Receive Date: 20040910
  Receipt Date: 20030407
  Transmission Date: 20050211
  Serious: Yes (Hospitalization, Other)
  Sender: FDA-Public Use
  Company Number: US-MERCK-0304USA00805

PATIENT
  Age: 56 Year
  Sex: Female
  Weight: 63 kg

DRUGS (6)
  1. ASPIRIN [Concomitant]
     Route: 065
  2. TEGRETOL [Concomitant]
     Route: 065
  3. DEPAKOTE [Concomitant]
     Route: 065
     Dates: end: 20020426
  4. MS CONTIN [Suspect]
     Indication: PAIN
     Route: 065
     Dates: end: 20020514
  5. VIOXX [Suspect]
     Indication: PSORIATIC ARTHROPATHY
     Route: 048
     Dates: start: 20010501
  6. VITAMINS (UNSPECIFIED) [Concomitant]
     Route: 065

REACTIONS (64)
  - ADVERSE EVENT [None]
  - AGITATION [None]
  - ALCOHOLISM [None]
  - ANTICONVULSANT DRUG LEVEL DECREASED [None]
  - ARTHRALGIA [None]
  - BALANCE DISORDER [None]
  - BELLIGERENCE [None]
  - CHOLELITHIASIS [None]
  - COMPLEX PARTIAL SEIZURES [None]
  - CONDITION AGGRAVATED [None]
  - CONSTIPATION [None]
  - DEPRESSED LEVEL OF CONSCIOUSNESS [None]
  - DEPRESSED MOOD [None]
  - DIARRHOEA [None]
  - DIZZINESS [None]
  - DRUG HYPERSENSITIVITY [None]
  - DRUG INEFFECTIVE [None]
  - DRUG LEVEL DECREASED [None]
  - EMOTIONAL DISTRESS [None]
  - FALL [None]
  - FATIGUE [None]
  - FOLLICULITIS [None]
  - GINGIVAL HYPERPLASIA [None]
  - GRAND MAL CONVULSION [None]
  - HEADACHE [None]
  - HEPATIC ENZYME INCREASED [None]
  - HEPATIC STEATOSIS [None]
  - HYPERLIPIDAEMIA [None]
  - HYPERNATRAEMIA [None]
  - HYPERTENSION [None]
  - HYPOACUSIS [None]
  - INJURY [None]
  - INTERVERTEBRAL DISC DEGENERATION [None]
  - LOCALISED OSTEOARTHRITIS [None]
  - LOW DENSITY LIPOPROTEIN INCREASED [None]
  - MEMORY IMPAIRMENT [None]
  - MENINGITIS [None]
  - MIGRAINE [None]
  - MYOCARDIAL INFARCTION [None]
  - NAIL PITTING [None]
  - NASAL POLYPS [None]
  - NECK PAIN [None]
  - OSTEOPENIA [None]
  - OSTEOPOROSIS [None]
  - OTITIS MEDIA [None]
  - PERIARTHRITIS [None]
  - PSORIASIS [None]
  - PYREXIA [None]
  - RADIUS FRACTURE [None]
  - RASH [None]
  - RESPIRATORY FAILURE [None]
  - RESPIRATORY PAPILLOMA [None]
  - SEPSIS [None]
  - SPINAL OSTEOARTHRITIS [None]
  - SPONDYLOSIS [None]
  - STUPOR [None]
  - SYNOVITIS [None]
  - THERAPY NON-RESPONDER [None]
  - TINNITUS [None]
  - VAGINAL INFECTION [None]
  - VERTIGO [None]
  - VOMITING [None]
  - WEIGHT INCREASED [None]
  - WRIST FRACTURE [None]
